FAERS Safety Report 8520828 (Version 16)
Quarter: 2013Q4

REPORT INFORMATION
  Report Type: Spontaneous
  Country: US (occurrence: US)
  Receive Date: 20120419
  Receipt Date: 20131203
  Transmission Date: 20140711
  Serious: Yes (Hospitalization, Disabling, Other)
  Sender: FDA-Public Use
  Company Number: US-ASTRAZENECA-2011SE41552

PATIENT
  Age: 59 Year
  Sex: Female

DRUGS (54)
  1. NEXIUM [Suspect]
     Indication: GASTROOESOPHAGEAL REFLUX DISEASE
     Route: 048
     Dates: start: 2006
  2. NEXIUM [Suspect]
     Indication: GASTROOESOPHAGEAL REFLUX DISEASE
     Route: 048
     Dates: start: 20090324
  3. NEXIUM [Suspect]
     Indication: GASTROOESOPHAGEAL REFLUX DISEASE
     Dosage: 40 MG A DAY AND LATER 40 MG TWICE A DAY
     Route: 048
     Dates: start: 20060530, end: 201206
  4. NEXIUM [Suspect]
     Indication: GASTROOESOPHAGEAL REFLUX DISEASE
     Route: 048
     Dates: start: 20120421
  5. CLONIDINE [Concomitant]
     Indication: HYPERTENSION
     Dates: start: 20090324
  6. CLONIDINE [Concomitant]
     Indication: HYPERTENSION
  7. ALPROLAZAM [Concomitant]
     Indication: BLOOD PRESSURE ABNORMAL
     Dates: start: 20090324
  8. ALPROLAZAM [Concomitant]
     Indication: ANXIETY
     Dates: start: 20090324
  9. ALPROLAZAM [Concomitant]
     Indication: BLOOD PRESSURE ABNORMAL
     Dosage: 5-40 MG DAILY
  10. ALPROLAZAM [Concomitant]
     Indication: ANXIETY
     Dosage: 5-40 MG DAILY
  11. ALPROLAZAM [Concomitant]
     Indication: BLOOD PRESSURE ABNORMAL
     Dates: start: 20120430
  12. ALPROLAZAM [Concomitant]
     Indication: ANXIETY
     Dates: start: 20120430
  13. PROTONIX [Concomitant]
     Indication: GASTROOESOPHAGEAL REFLUX DISEASE
  14. TUMS [Concomitant]
     Indication: DYSPEPSIA
  15. FUROSEMIDE [Concomitant]
     Indication: FLUID IMBALANCE
     Dates: start: 20090324
  16. FUROSEMIDE [Concomitant]
     Indication: FLUID IMBALANCE
  17. SPIRONOLACTONE [Concomitant]
     Dates: start: 20090324
  18. ROZEREM [Concomitant]
     Dates: start: 20090324
  19. LEVOTHYROXINE/LEVOXYL [Concomitant]
     Indication: HYPOTHYROIDISM
     Dates: start: 20090324
  20. LEVOTHYROXINE/LEVOXYL [Concomitant]
     Indication: HYPOTHYROIDISM
     Dates: start: 20121006
  21. DARVOCET N [Concomitant]
     Dosage: 100 TO 650 MG
     Dates: start: 20090324
  22. AMLODIPIN [Concomitant]
     Dates: start: 20090324
  23. CRESTOR [Concomitant]
     Indication: HYPERLIPIDAEMIA
     Dates: start: 20090324
  24. CELEBREX [Concomitant]
     Dates: start: 20090324
  25. FLEXERIL [Concomitant]
     Dates: start: 20090324
  26. LORTAB [Concomitant]
     Indication: BACK PAIN
     Dosage: 5 TO 50 MG ONE TIME ONLY
     Dates: start: 20090324
  27. LORTAB [Concomitant]
     Indication: PAIN
     Dosage: 5 TO 50 MG ONE TIME ONLY
     Dates: start: 20090324
  28. LORTAB [Concomitant]
     Indication: BACK PAIN
     Dosage: 10-325 MG TWO TIMES DAILY
  29. LORTAB [Concomitant]
     Indication: PAIN
     Dosage: 10-325 MG TWO TIMES DAILY
  30. ACETYLCYSTEINE [Concomitant]
     Dates: start: 20101224
  31. ZOSYN [Concomitant]
     Dates: start: 20101224
  32. PROPOFOL [Concomitant]
     Dates: start: 20101224
  33. VANCOMYCIN [Concomitant]
     Dates: start: 20101224
  34. ASPIRIN [Concomitant]
     Dates: start: 20101224
  35. DIPHENHYDRAMINE [Concomitant]
     Dates: start: 20101224
  36. LOVENOX [Concomitant]
     Dates: start: 20090515
  37. ATROVENT [Concomitant]
     Dates: start: 20101224
  38. MAGNESIUM [Concomitant]
     Dates: start: 20101224
  39. ZOFRAN [Concomitant]
     Dates: start: 20101224
  40. TAMIFLU [Concomitant]
     Dates: start: 20101224
  41. AMBIEN [Concomitant]
     Dates: start: 20101224
  42. REGLAN [Concomitant]
     Indication: GASTROOESOPHAGEAL REFLUX DISEASE
     Dates: start: 20090515
  43. SOMA/CARISOPRODOL [Concomitant]
     Indication: NEOPLASM
     Dates: start: 20090515
  44. SOMA/CARISOPRODOL [Concomitant]
     Indication: OSTEOARTHRITIS
     Dates: start: 20090515
  45. SOMA/CARISOPRODOL [Concomitant]
     Indication: NEOPLASM
  46. SOMA/CARISOPRODOL [Concomitant]
     Indication: OSTEOARTHRITIS
  47. ZOLOFT [Concomitant]
     Indication: DEPRESSION
     Dates: start: 20090515
  48. WARFARIN/COUMADIN [Concomitant]
     Indication: THROMBOSIS
     Dates: start: 20090324
  49. WARFARIN/COUMADIN [Concomitant]
     Indication: THROMBOSIS
  50. PREMARIN [Concomitant]
  51. TRIAZOLAM [Concomitant]
     Dates: start: 20120710
  52. CLONIDINE HCL [Concomitant]
     Dates: start: 20120804
  53. DEXILANT DR [Concomitant]
     Dates: start: 20121006
  54. AMOXICILLIN [Concomitant]
     Dates: start: 20130518

REACTIONS (15)
  - Upper limb fracture [Unknown]
  - Humerus fracture [Unknown]
  - Spinal fracture [Unknown]
  - Cervical vertebral fracture [Unknown]
  - Fall [Unknown]
  - Osteoporosis [Unknown]
  - Tibia fracture [Unknown]
  - Anxiety [Unknown]
  - Nightmare [Unknown]
  - Compression fracture [Unknown]
  - Fibula fracture [Unknown]
  - Lower limb fracture [Unknown]
  - Thyroid disorder [Unknown]
  - Arthralgia [Unknown]
  - Depression [Unknown]
